FAERS Safety Report 9201415 (Version 1)
Quarter: 2013Q2

REPORT INFORMATION
  Report Type: Report from Study
  Country: JP (occurrence: JP)
  Receive Date: 20130401
  Receipt Date: 20130401
  Transmission Date: 20140414
  Serious: Yes (Hospitalization)
  Sender: FDA-Public Use
  Company Number: JP-SANOFI-AVENTIS-2013SA010219

PATIENT
  Age: 44 Year
  Sex: Male
  Weight: 68.75 kg

DRUGS (22)
  1. LANTUS SOLOSTAR [Suspect]
     Indication: TYPE 2 DIABETES MELLITUS
     Dosage: DOSE:2 UNIT(S)
     Route: 058
     Dates: start: 20120825, end: 20120825
  2. LANTUS SOLOSTAR [Suspect]
     Indication: TYPE 2 DIABETES MELLITUS
     Dosage: DOSE:4 UNIT(S)
     Route: 058
     Dates: start: 20120826, end: 20120826
  3. LANTUS SOLOSTAR [Suspect]
     Indication: TYPE 2 DIABETES MELLITUS
     Dosage: DOSE:6 UNIT(S)
     Route: 058
     Dates: start: 20120827, end: 20120827
  4. LANTUS SOLOSTAR [Suspect]
     Indication: TYPE 2 DIABETES MELLITUS
     Dosage: DOSE:10 UNIT(S)
     Route: 058
     Dates: start: 20120829, end: 20121130
  5. LANTUS SOLOSTAR [Suspect]
     Indication: TYPE 2 DIABETES MELLITUS
     Dosage: DOSE:12 UNIT(S)
     Route: 058
     Dates: start: 20121201, end: 20130105
  6. LANTUS SOLOSTAR [Suspect]
     Indication: TYPE 2 DIABETES MELLITUS
     Dosage: DOSE:14 UNIT(S)
     Route: 058
     Dates: start: 20130106, end: 20130106
  7. LANTUS SOLOSTAR [Suspect]
     Indication: TYPE 2 DIABETES MELLITUS
     Dosage: DOSE:17 UNIT(S)
     Route: 058
     Dates: start: 20130107, end: 20130125
  8. LANTUS SOLOSTAR [Suspect]
     Indication: TYPE 2 DIABETES MELLITUS
     Dosage: DOSE:14 UNIT(S)
     Route: 058
     Dates: start: 20130126
  9. LANTUS SOLOSTAR [Suspect]
     Indication: TYPE 2 DIABETES MELLITUS
     Dosage: DOSE:8 UNIT(S)
     Route: 058
     Dates: start: 20120828, end: 20120828
  10. SOLOSTAR [Suspect]
     Indication: DEVICE THERAPY
     Dates: start: 20120825, end: 20120825
  11. SOLOSTAR [Suspect]
     Indication: DEVICE THERAPY
     Dates: start: 20120826, end: 20120826
  12. SOLOSTAR [Suspect]
     Indication: DEVICE THERAPY
     Dates: start: 20120827, end: 20120827
  13. SOLOSTAR [Suspect]
     Indication: DEVICE THERAPY
     Dates: start: 20120828, end: 20120828
  14. SOLOSTAR [Suspect]
     Indication: DEVICE THERAPY
     Dates: start: 20120829, end: 20121130
  15. SOLOSTAR [Suspect]
     Indication: DEVICE THERAPY
     Dates: start: 20121201, end: 20130105
  16. SOLOSTAR [Suspect]
     Indication: DEVICE THERAPY
     Dates: start: 20130106, end: 20130106
  17. SOLOSTAR [Suspect]
     Indication: DEVICE THERAPY
     Dates: start: 20130107, end: 20130125
  18. SOLOSTAR [Suspect]
     Indication: DEVICE THERAPY
     Dates: start: 20130126
  19. METGLUCO [Concomitant]
     Indication: TYPE 2 DIABETES MELLITUS
     Route: 048
  20. GLACTIV [Concomitant]
     Indication: TYPE 2 DIABETES MELLITUS
     Route: 048
     Dates: end: 20130104
  21. IMIDAPRIL HYDROCHLORIDE [Concomitant]
     Route: 048
  22. AVAPRO [Concomitant]
     Route: 048

REACTIONS (2)
  - Acarodermatitis [Not Recovered/Not Resolved]
  - Penile necrosis [Not Recovered/Not Resolved]
